FAERS Safety Report 8621891-4 (Version None)
Quarter: 2012Q3

REPORT INFORMATION
  Report Type: 
  Country: None (occurrence: None)
  Receive Date: 20120822
  Receipt Date: 20120822
  Transmission Date: 20120928
  Serious: Yes (Hospitalization)
  Sender: FDA-Public Use
  Company Number: None

PATIENT
  Sex: Female
  Weight: 91.6 kg

DRUGS (1)
  1. CISPLATIN [Suspect]
     Dosage: 299 MG

REACTIONS (3)
  - FEEDING TUBE COMPLICATION [None]
  - OTOTOXICITY [None]
  - FEBRILE NEUTROPENIA [None]
